FAERS Safety Report 9659792 (Version 1)
Quarter: 2013Q4

REPORT INFORMATION
  Report Type: Spontaneous
  Country: US (occurrence: US)
  Receive Date: 20131031
  Receipt Date: 20131031
  Transmission Date: 20140711
  Serious: No
  Sender: FDA-Public Use
  Company Number: US-PFIZER INC-2013307899

PATIENT
  Sex: Female

DRUGS (3)
  1. ADVIL COLD AND SINUS [Suspect]
     Indication: NASOPHARYNGITIS
     Dosage: UNK
  2. ASPIRIN [Concomitant]
     Dosage: UNK, DAILY
  3. PLAVIX [Concomitant]
     Dosage: UNK

REACTIONS (1)
  - Abdominal pain upper [Recovering/Resolving]
